FAERS Safety Report 9465511 (Version 5)
Quarter: 2013Q3

REPORT INFORMATION
  Report Type: Report from Study
  Country: JP (occurrence: JP)
  Receive Date: 20130820
  Receipt Date: 20130920
  Transmission Date: 20140515
  Serious: Yes (Hospitalization)
  Sender: FDA-Public Use
  Company Number: JP-BRISTOL-MYERS SQUIBB COMPANY-19191006

PATIENT
  Age: 59 Year
  Sex: Female

DRUGS (26)
  1. PACLITAXEL [Suspect]
     Indication: BREAST CANCER
     Dosage: LAST DOSE101.7MG ON 31JUL13
     Route: 042
     Dates: start: 20120201
  2. TRASTUZUMAB [Suspect]
     Indication: BREAST CANCER
     Dosage: 125 MG ON 31-JUL-2013 (1 IN 1 WEEK)
     Dates: start: 20120201
  3. NOVORAPID [Concomitant]
     Indication: DIABETES MELLITUS
     Dates: start: 20111227
  4. LANTUS [Concomitant]
     Indication: DIABETES MELLITUS
     Dates: start: 20111227
  5. GLUCOSE [Concomitant]
     Indication: HYPOGLYCAEMIA
     Dates: start: 20120106
  6. CRESTOR [Concomitant]
     Indication: DYSLIPIDAEMIA
     Dates: start: 20120111
  7. KYTRIL [Concomitant]
     Dates: start: 20120201
  8. DECADRON [Concomitant]
     Dates: start: 20120201
  9. MAGMITT [Concomitant]
     Dates: start: 20120215
  10. ZANTAC [Concomitant]
     Dates: start: 20120201
  11. POLARAMINE [Concomitant]
     Dates: start: 20120201
  12. GASMOTIN [Concomitant]
     Dosage: THERAPY DATES:27AUG12
     Dates: start: 20120314
  13. SELBEX [Concomitant]
     Dates: start: 20120314
  14. FERO-GRADUMET [Concomitant]
     Indication: HYPOCHROMASIA
     Dates: start: 20120329
  15. SENNOSIDE [Concomitant]
     Indication: CONSTIPATION PROPHYLAXIS
     Dosage: THERAPY DATES:11-APR-2013
     Dates: start: 20120406
  16. MYONAL [Concomitant]
     Indication: MUSCULOSKELETAL STIFFNESS
     Dates: start: 20120411
  17. RINDERON-VG [Concomitant]
     Indication: NAIL DISORDER
     Dosage: LOTION?06JUL2013-08JUL2013:3D:OINTMENT?RINDERON A:31JUL2013-ONG
     Dates: start: 20120516, end: 20130708
  18. JANUVIA [Concomitant]
     Indication: DIABETES MELLITUS
     Dates: start: 20120329
  19. DIOVAN [Concomitant]
     Indication: HYPERTENSION
     Dates: start: 20120524
  20. LENDORMIN [Concomitant]
     Indication: INSOMNIA
     Dates: start: 20121003
  21. LASIX [Concomitant]
     Indication: OEDEMA
     Dosage: TAB
     Dates: start: 20121025
  22. LYRICA [Concomitant]
     Indication: PERIPHERAL SENSORY NEUROPATHY
     Dates: start: 20130508
  23. SODIUM GUALENATE [Concomitant]
     Indication: LACRIMATION INCREASED
     Dosage: AZ OPTHALMIC
     Dates: start: 20130616
  24. ZYLORIC [Concomitant]
     Indication: HYPERURICAEMIA
     Dosage: 07JUL2013-ONG
     Dates: start: 20130807
  25. URINORM [Concomitant]
     Indication: HYPERURICAEMIA
     Dosage: 15MAT13-23JUL13?THERAPY DATES:23MAY2013-STOPPED
     Dates: start: 20130515
  26. APHTASOLON [Concomitant]
     Indication: STOMATITIS
     Dates: start: 20130811, end: 20130819

REACTIONS (1)
  - Calculus urinary [Not Recovered/Not Resolved]
